FAERS Safety Report 5278611-3 (Version None)
Quarter: 2007Q1

REPORT INFORMATION
  Report Type: 
  Country: None (occurrence: None)
  Receive Date: 20070328
  Receipt Date: 20070321
  Transmission Date: 20070707
  Serious: Yes (Life-Threatening, Hospitalization, Other)
  Sender: FDA-Public Use
  Company Number: GB-GLAXOSMITHKLINE-B0461036A

PATIENT
  Age: 59 Year
  Sex: Male

DRUGS (1)
  1. REQUIP [Suspect]
     Indication: PARKINSON'S DISEASE
     Route: 048
     Dates: start: 20060401

REACTIONS (4)
  - CONTUSION [None]
  - IMPAIRED DRIVING ABILITY [None]
  - ROAD TRAFFIC ACCIDENT [None]
  - SOMNOLENCE [None]
